FAERS Safety Report 5149540-0 (Version None)
Quarter: 2006Q4

REPORT INFORMATION
  Report Type: 
  Country: None (occurrence: None)
  Receive Date: 20061113
  Receipt Date: 20060403
  Transmission Date: 20070319
  Serious: No
  Sender: FDA-Public Use
  Company Number: US-GLAXOSMITHKLINE-A0600338A

PATIENT
  Sex: Male

DRUGS (3)
  1. COREG [Suspect]
     Route: 048
  2. ALPHA BLOCKER [Concomitant]
  3. VIAGRA [Concomitant]

REACTIONS (1)
  - ERECTILE DYSFUNCTION [None]
